FAERS Safety Report 5049256-5 (Version None)
Quarter: 2006Q3

REPORT INFORMATION
  Report Type: 
  Country: None (occurrence: None)
  Receive Date: 20060707
  Receipt Date: 20060629
  Transmission Date: 20061208
  Serious: Yes (Other)
  Sender: FDA-Public Use
  Company Number: 2006-06-2188

PATIENT
  Sex: Female

DRUGS (1)
  1. TEMODAR [Suspect]
     Dosage: ORAL
     Route: 048

REACTIONS (1)
  - APLASTIC ANAEMIA [None]
